FAERS Safety Report 6566416-2 (Version None)
Quarter: 2010Q1

REPORT INFORMATION
  Report Type: 
  Country: None (occurrence: None)
  Receive Date: 20100202
  Receipt Date: 20100118
  Transmission Date: 20100710
  Serious: Yes (Hospitalization)
  Sender: FDA-Public Use
  Company Number: PHHO2010IT01209

PATIENT
  Sex: Male
  Weight: 83 kg

DRUGS (2)
  1. CERTICAN [Suspect]
     Indication: RENAL TRANSPLANT
     Dosage: 0.75 MG, BID
     Route: 048
     Dates: start: 20091202, end: 20091229
  2. MYFORTIC [Concomitant]

REACTIONS (2)
  - IMPAIRED HEALING [None]
  - SURGERY [None]
